FAERS Safety Report 4637653-9 (Version None)
Quarter: 2005Q2

REPORT INFORMATION
  Report Type: 
  Country: None (occurrence: None)
  Receive Date: 20050418
  Receipt Date: 20050410
  Transmission Date: 20051028
  Serious: Yes (Life-Threatening)
  Sender: FDA-Public Use
  Company Number: IT-GLAXOSMITHKLINE-B0377951A

PATIENT
  Age: 39 Year
  Sex: Female

DRUGS (3)
  1. ZINNAT [Suspect]
     Indication: UPPER RESPIRATORY TRACT INFECTION
  2. CARBOCYSTEINE [Concomitant]
  3. NORAMIDOPYRINE [Concomitant]
     Indication: HEADACHE

REACTIONS (14)
  - ANGIONEUROTIC OEDEMA [None]
  - ANTEROGRADE AMNESIA [None]
  - BLOOD PRESSURE DECREASED [None]
  - CYANOSIS [None]
  - DIFFICULTY IN WALKING [None]
  - DYSPNOEA [None]
  - LOSS OF CONSCIOUSNESS [None]
  - MACROGLOSSIA [None]
  - PARAESTHESIA [None]
  - PRURITUS GENERALISED [None]
  - SPEECH DISORDER [None]
  - SYNCOPE [None]
  - THROAT TIGHTNESS [None]
  - THROMBOCYTOPENIA [None]
